FAERS Safety Report 10308889 (Version 1)
Quarter: 2014Q3

REPORT INFORMATION
  Report Type: Report from Study
  Country: BR (occurrence: BR)
  Receive Date: 20140716
  Receipt Date: 20140716
  Transmission Date: 20150326
  Serious: Yes (Death, Hospitalization, Other)
  Sender: FDA-Public Use
  Company Number: PHHY2014BR087223

PATIENT
  Sex: Male
  Weight: 55 kg

DRUGS (6)
  1. RUSOVAS [Concomitant]
     Active Substance: ROSUVASTATIN
     Indication: CARDIOVASCULAR DISORDER
     Dosage: 10 UKN, UNK
     Dates: end: 201307
  2. GALVUS [Suspect]
     Active Substance: VILDAGLIPTIN
     Indication: DIABETES MELLITUS
     Dosage: 2 TABLETS (50 MG), UNK
  3. ATENOLOL. [Concomitant]
     Active Substance: ATENOLOL
     Indication: CARDIOVASCULAR DISORDER
     Dosage: 25 UKN, UNK
     Dates: end: 201307
  4. DIOVAN [Suspect]
     Active Substance: VALSARTAN
     Indication: HYPERTENSION
     Dosage: 80 MG, ONCE DAILY
     Route: 048
     Dates: end: 201309
  5. SOMALGIN [Concomitant]
     Active Substance: ASPIRIN\DIHYDROXYALUMINUM AMINOACETATE ANHYDROUS\MAGNESIUM CARBONATE
     Indication: CARDIOVASCULAR DISORDER
     Dosage: 100 UKN, UNK
     Dates: end: 201307
  6. GALVUS [Suspect]
     Active Substance: VILDAGLIPTIN
     Dosage: 50 MG, ONCE DAILY
     Dates: end: 2013

REACTIONS (4)
  - Bronchopneumonia [Unknown]
  - Multi-organ failure [Fatal]
  - Condition aggravated [Unknown]
  - Malaise [Unknown]
